FAERS Safety Report 10688225 (Version 2)
Quarter: 2015Q1

REPORT INFORMATION
  Report Type: Spontaneous
  Country: JP (occurrence: None)
  Receive Date: 20141231
  Receipt Date: 20150126
  Transmission Date: 20150720
  Serious: Yes (Other)
  Sender: FDA-Public Use
  Company Number: JP2014JPN039667

PATIENT
  Sex: Male

DRUGS (6)
  1. TIVICAY [Suspect]
     Active Substance: DOLUTEGRAVIR SODIUM
     Indication: HIV INFECTION
     Route: 048
     Dates: start: 201409
  2. ALDACTONE [Concomitant]
     Active Substance: SPIRONOLACTONE
  3. BARACLUDE (ENTECAVIR) [Concomitant]
     Active Substance: ENTECAVIR
  4. FUROSEMIDE. [Concomitant]
     Active Substance: FUROSEMIDE
  5. EPIVIR [Suspect]
     Active Substance: LAMIVUDINE
     Indication: HIV INFECTION
     Route: 048
     Dates: start: 201409
  6. ZIAGEN [Suspect]
     Active Substance: ABACAVIR SULFATE
     Indication: HIV INFECTION
     Dates: start: 201409

REACTIONS (4)
  - Lymphoma [None]
  - Blood alkaline phosphatase increased [None]
  - Osteolysis [None]
  - Hypercalcaemia [None]

NARRATIVE: CASE EVENT DATE: 201410
